FAERS Safety Report 10193448 (Version 1)
Quarter: 2014Q2

REPORT INFORMATION
  Report Type: Spontaneous
  Country: US (occurrence: US)
  Receive Date: 20140524
  Receipt Date: 20140524
  Transmission Date: 20141212
  Serious: No
  Sender: FDA-Public Use
  Company Number: US-SA-2014SA003940

PATIENT
  Age: 57 Year
  Sex: Female

DRUGS (2)
  1. SOLOSTAR [Suspect]
     Indication: DIABETES MELLITUS
     Dosage: PRODUCT STARTED 2-3 YEARS AGO.
  2. LANTUS SOLOSTAR [Suspect]
     Indication: DIABETES MELLITUS
     Dosage: PRODUCT STARTED 2-3 YEARS AGO. DOSE:15 UNIT(S)
     Route: 058

REACTIONS (2)
  - Depressed mood [Unknown]
  - Blood glucose increased [Unknown]
